FAERS Safety Report 5047148-9 (Version None)
Quarter: 2006Q3

REPORT INFORMATION
  Report Type: 
  Country: None (occurrence: None)
  Receive Date: 20060703
  Receipt Date: 20060621
  Transmission Date: 20061208
  Serious: No
  Sender: FDA-Public Use
  Company Number: 2006-142680-NL

PATIENT
  Age: 45 Year
  Sex: Female

DRUGS (4)
  1. MIRTAZAPINE [Suspect]
     Indication: DEPRESSION
     Dosage: 45 MG/60 MG
  2. GABAPENTIN [Concomitant]
  3. METOCLOPRAMIDE [Concomitant]
  4. CLONAZEPAM [Concomitant]

REACTIONS (2)
  - BRUXISM [None]
  - TRISMUS [None]
